FAERS Safety Report 9869454 (Version 1)
Quarter: 2014Q1

REPORT INFORMATION
  Report Type: Spontaneous
  Country: US (occurrence: US)
  Receive Date: 20140205
  Receipt Date: 20140205
  Transmission Date: 20141002
  Serious: No
  Sender: FDA-Public Use
  Company Number: US-PFIZER INC-2014029306

PATIENT
  Age: 84 Year
  Sex: Female

DRUGS (4)
  1. GLIBENCLAMIDE [Suspect]
     Dosage: 20 MG, 1X/DAY
  2. METOPROLOL SUCCINATE [Suspect]
     Indication: BLOOD GLUCOSE ABNORMAL
     Dosage: 50 MG, 1X/DAY
  3. WARFARIN [Concomitant]
     Indication: CARDIAC DISORDER
     Dosage: UNK (2MG DAILY FOUR DAYS A WEEK AND 4MG DAILY THREE DAYS A WEEK), 1X/DAY
  4. VITAMIN B12 [Concomitant]
     Dosage: UNK

REACTIONS (1)
  - Vitamin D decreased [Unknown]
